FAERS Safety Report 6443295-5 (Version None)
Quarter: 2009Q4

REPORT INFORMATION
  Report Type: 
  Country: None (occurrence: None)
  Receive Date: 20091117
  Receipt Date: 20091105
  Transmission Date: 20100525
  Serious: Yes (Hospitalization)
  Sender: FDA-Public Use
  Company Number: FR-JNJFOC-20091101847

PATIENT
  Age: 48 Year
  Sex: Female

DRUGS (5)
  1. CAELYX [Suspect]
     Indication: BREAST CANCER
     Route: 042
  2. AROMASINE [Concomitant]
     Indication: BREAST CANCER
     Route: 065
  3. ENANTON [Concomitant]
     Indication: BREAST CANCER
     Route: 065
  4. ZOPHREN [Concomitant]
     Indication: PREMEDICATION
     Route: 065
  5. SOLU-MEDROL [Concomitant]
     Indication: PREMEDICATION
     Route: 065

REACTIONS (6)
  - ABDOMINAL PAIN UPPER [None]
  - HOT FLUSH [None]
  - HYPERHIDROSIS [None]
  - INFUSION RELATED REACTION [None]
  - PARAESTHESIA MUCOSAL [None]
  - TACHYCARDIA [None]
